FAERS Safety Report 25547460 (Version 1)
Quarter: 2025Q3

REPORT INFORMATION
  Report Type: Spontaneous
  Country: EU (occurrence: EU)
  Receive Date: 20250714
  Receipt Date: 20250714
  Transmission Date: 20251020
  Serious: Yes (Hospitalization, Other)
  Sender: VIWIT PHARMACEUTICAL
  Company Number: EU-VIWITPHARMA-2025VWTLIT00028

PATIENT
  Age: 15 Year
  Sex: Female

DRUGS (2)
  1. SERTRALINE [Suspect]
     Active Substance: SERTRALINE HYDROCHLORIDE
     Indication: Post-traumatic stress disorder
  2. RISPERIDONE [Concomitant]
     Active Substance: RISPERIDONE
     Indication: Post-traumatic stress disorder

REACTIONS (1)
  - Eosinophilic pneumonia acute [Recovered/Resolved]
